FAERS Safety Report 4454313-8 (Version None)
Quarter: 2004Q3

REPORT INFORMATION
  Report Type: 
  Country: None (occurrence: None)
  Receive Date: 20040916
  Receipt Date: 20040916
  Transmission Date: 20050211
  Serious: Yes (Hospitalization)
  Sender: FDA-Public Use
  Company Number: None

PATIENT
  Age: 25 Year
  Sex: Male
  Weight: 111 kg

DRUGS (10)
  1. TEQUIN [Suspect]
  2. CEPHALEXIN [Concomitant]
  3. GATIFLOXACIN [Concomitant]
  4. SODIUM CHLORIDE INJ [Concomitant]
  5. POVIDONE IODINE [Concomitant]
  6. BACITRACIN [Concomitant]
  7. HYDROGEN PEROXIDE SOLUTION [Concomitant]
  8. DICLOFENAC SODIUM [Concomitant]
  9. TRIAMCINOLONE ACETONIDE [Concomitant]
  10. EPIPEN [Concomitant]

REACTIONS (2)
  - PRURITUS [None]
  - RASH [None]
